FAERS Safety Report 5420201-3 (Version None)
Quarter: 2007Q3

REPORT INFORMATION
  Report Type: 
  Country: None (occurrence: None)
  Receive Date: 20070820
  Receipt Date: 20070813
  Transmission Date: 20080115
  Serious: Yes (Hospitalization)
  Sender: FDA-Public Use
  Company Number: FR-BOEHRINGER INGELHEIM PHARMACEUTICALS, INC.-2007-FF-00761FF

PATIENT
  Sex: Female
  Weight: 62 kg

DRUGS (3)
  1. VIRAMUNE [Suspect]
     Indication: HIV INFECTION
     Route: 048
     Dates: start: 20070607, end: 20070621
  2. VIRAMUNE [Suspect]
     Route: 048
     Dates: start: 20070622, end: 20070629
  3. COMBIVIR [Concomitant]
     Indication: HIV INFECTION
     Route: 048
     Dates: start: 19971208

REACTIONS (8)
  - ASTHENIA [None]
  - C-REACTIVE PROTEIN INCREASED [None]
  - CYTOLYTIC HEPATITIS [None]
  - HEADACHE [None]
  - HYPERTHERMIA [None]
  - JAUNDICE [None]
  - MYALGIA [None]
  - PRURITUS [None]
